FAERS Safety Report 6505821-7 (Version None)
Quarter: 2009Q4

REPORT INFORMATION
  Report Type: 
  Country: None (occurrence: None)
  Receive Date: 20091218
  Receipt Date: 20091217
  Transmission Date: 20100525
  Serious: Yes (Other)
  Sender: FDA-Public Use
  Company Number: US-WYE-H12684609

PATIENT

DRUGS (1)
  1. EFFEXOR [Suspect]
     Dosage: UNSPECIFIED

REACTIONS (1)
  - PARKINSON'S DISEASE [None]
